FAERS Safety Report 14873014 (Version 2)
Quarter: 2018Q3

REPORT INFORMATION
  Report Type: Report from Study
  Country: GB (occurrence: GB)
  Receive Date: 20180510
  Receipt Date: 20180724
  Transmission Date: 20181010
  Serious: Yes (Hospitalization, Other)
  Sender: FDA-Public Use
  Company Number: GB-ROCHE-2118230

PATIENT
  Age: 74 Year
  Sex: Male

DRUGS (1)
  1. RITUXIMAB. [Suspect]
     Active Substance: RITUXIMAB
     Indication: RHEUMATOID ARTHRITIS
     Route: 042
     Dates: start: 20170111

REACTIONS (14)
  - Cardiac failure congestive [Unknown]
  - Anastomotic leak [Unknown]
  - Strangulated hernia [Unknown]
  - Diarrhoea [Unknown]
  - Small intestinal obstruction [Unknown]
  - Acute kidney injury [Unknown]
  - Vomiting [Unknown]
  - Benign tumour excision [Unknown]
  - Ill-defined disorder [Unknown]
  - Ill-defined disorder [Unknown]
  - Cardiomegaly [Unknown]
  - Renal impairment [Unknown]
  - Colon cancer [Recovered/Resolved]
  - Gastrointestinal stoma complication [Unknown]

NARRATIVE: CASE EVENT DATE: 20170927
